FAERS Safety Report 4290171-2 (Version None)
Quarter: 2004Q1

REPORT INFORMATION
  Report Type: 
  Country: None (occurrence: None)
  Receive Date: 20040206
  Receipt Date: 20040123
  Transmission Date: 20041129
  Serious: Yes (Hospitalization)
  Sender: FDA-Public Use
  Company Number: SUSI-2004-00039

PATIENT
  Age: 31 Year
  Sex: Male

DRUGS (1)
  1. ADDERALL 10 [Suspect]
     Indication: ATTENTION DEFICIT/HYPERACTIVITY DISORDER
     Dosage: 210 MG PER DAY
     Dates: start: 20030901, end: 20040113

REACTIONS (3)
  - EPIDIDYMITIS [None]
  - PARANOIA [None]
  - PSYCHOTIC DISORDER [None]
